FAERS Safety Report 12267250 (Version 1)
Quarter: 2016Q2

REPORT INFORMATION
  Report Type: Spontaneous
  Country: US (occurrence: US)
  Receive Date: 20160414
  Receipt Date: 20160414
  Transmission Date: 20160815
  Serious: Yes (Death)
  Sender: FDA-Public Use
  Company Number: US-PFIZER INC-2016210906

PATIENT
  Age: 73 Year
  Sex: Male

DRUGS (1)
  1. SUTENT [Suspect]
     Active Substance: SUNITINIB MALATE
     Indication: RENAL CELL CARCINOMA
     Dosage: 50MG FOR 14 DAYS THEN OFF FOR 7 DAYS, CYCLIC
     Dates: start: 201602, end: 20160314

REACTIONS (2)
  - Disease progression [Fatal]
  - Renal cell carcinoma [Fatal]
